FAERS Safety Report 8762837 (Version 2)
Quarter: 2013Q4

REPORT INFORMATION
  Report Type: Spontaneous
  Country: FR (occurrence: FR)
  Receive Date: 20120828
  Receipt Date: 20131028
  Transmission Date: 20140711
  Serious: Yes (Hospitalization, Other)
  Sender: FDA-Public Use
  Company Number: FR-PFIZER INC-2012210010

PATIENT
  Age: 67 Year
  Sex: Female

DRUGS (9)
  1. CORDARONE [Suspect]
     Indication: ARRHYTHMIA
     Dosage: UNK
     Route: 048
     Dates: start: 2008, end: 20120727
  2. ELISOR [Concomitant]
     Dosage: UNK
  3. KARDEGIC [Concomitant]
     Dosage: UNK
  4. TEMERIT [Concomitant]
     Dosage: UNK
  5. PREVISCAN [Concomitant]
     Dosage: UNK
  6. DIAMICRON [Concomitant]
     Dosage: UNK
  7. OLMETEC [Concomitant]
     Dosage: UNK
  8. LERCAN [Concomitant]
     Dosage: UNK
  9. METFORMINE [Concomitant]
     Dosage: UNK
     Dates: end: 2012

REACTIONS (2)
  - Interstitial lung disease [Recovered/Resolved]
  - Urinary tract infection [Unknown]
